FAERS Safety Report 13817362 (Version 2)
Quarter: 2017Q3

REPORT INFORMATION
  Report Type: Spontaneous
  Country: TW (occurrence: TW)
  Receive Date: 20170731
  Receipt Date: 20170801
  Transmission Date: 20171127
  Serious: Yes (Death, Hospitalization, Other)
  Sender: FDA-Public Use
  Company Number: PHHY2017TW111478

PATIENT
  Age: 13 Year
  Sex: Female

DRUGS (6)
  1. METHOTREXATE. [Suspect]
     Active Substance: METHOTREXATE
     Indication: STEM CELL TRANSPLANT
     Dosage: 15 MG/M2, UNK (ON DAY 1)
     Route: 065
  2. METHOTREXATE. [Suspect]
     Active Substance: METHOTREXATE
     Indication: PROPHYLAXIS AGAINST GRAFT VERSUS HOST DISEASE
     Dosage: 10 MG/M2, UNK (DAYS +3 AND +6)
     Route: 065
  3. CYCLOPHOSPHAMIDE. [Concomitant]
     Active Substance: CYCLOPHOSPHAMIDE
     Indication: BONE MARROW CONDITIONING REGIMEN
     Dosage: 60 MG/KG, QD
     Route: 065
  4. CICLOSPORIN [Suspect]
     Active Substance: CYCLOSPORINE
     Indication: PROPHYLAXIS AGAINST GRAFT VERSUS HOST DISEASE
  5. CICLOSPORIN [Suspect]
     Active Substance: CYCLOSPORINE
     Indication: STEM CELL TRANSPLANT
     Dosage: 2.5 MG/KG, EVERY 8 HOURS
     Route: 042
  6. ANTITHYMOCYTE IMMUNOGLOBULIN [Concomitant]
     Active Substance: THYMOCYTE IMMUNE GLOBULIN NOS
     Indication: BONE MARROW CONDITIONING REGIMEN
     Dosage: 2 MG/KG, QD
     Route: 065

REACTIONS (18)
  - Multiple organ dysfunction syndrome [Fatal]
  - Malaise [Recovering/Resolving]
  - Generalised erythema [Recovering/Resolving]
  - Weight decreased [Recovering/Resolving]
  - Acute graft versus host disease in skin [Recovering/Resolving]
  - Hyperbilirubinaemia [Recovering/Resolving]
  - Pneumonia respiratory syncytial viral [Fatal]
  - Abdominal pain [Recovering/Resolving]
  - Dehydration [Recovering/Resolving]
  - Respiratory failure [Fatal]
  - Renal impairment [Recovering/Resolving]
  - Diarrhoea [Recovering/Resolving]
  - Dry skin [Recovering/Resolving]
  - Graft versus host disease in gastrointestinal tract [Recovering/Resolving]
  - Rash generalised [Recovering/Resolving]
  - Decreased appetite [Recovering/Resolving]
  - Graft versus host disease in liver [Recovering/Resolving]
  - Carcinoid tumour of the gastrointestinal tract [Unknown]

NARRATIVE: CASE EVENT DATE: 201311
